FAERS Safety Report 20624577 (Version 1)
Quarter: 2022Q1

REPORT INFORMATION
  Report Type: Spontaneous
  Country: US (occurrence: US)
  Receive Date: 20220322
  Receipt Date: 20220322
  Transmission Date: 20220423
  Serious: Yes (Other)
  Sender: FDA-Public Use
  Company Number: US-JNJFOC-20220340199

PATIENT

DRUGS (3)
  1. INVEGA SUSTENNA [Suspect]
     Active Substance: PALIPERIDONE PALMITATE
     Indication: Bipolar disorder
     Dosage: TOOK DRUG FOR 2 TO 5 YEARS
     Route: 030
  2. INVEGA SUSTENNA [Suspect]
     Active Substance: PALIPERIDONE PALMITATE
  3. INVEGA SUSTENNA [Suspect]
     Active Substance: PALIPERIDONE PALMITATE

REACTIONS (9)
  - Prolactin-producing pituitary tumour [Unknown]
  - Liver disorder [Unknown]
  - Cognitive disorder [Unknown]
  - Glucose tolerance impaired [Unknown]
  - Weight increased [Unknown]
  - Pain [Unknown]
  - Quality of life decreased [Unknown]
  - Off label use [Unknown]
  - Product use in unapproved indication [Unknown]
